FAERS Safety Report 16860589 (Version 1)
Quarter: 2019Q3

REPORT INFORMATION
  Report Type: Other
  Country: DE (occurrence: DE)
  Receive Date: 20190927
  Receipt Date: 20190927
  Transmission Date: 20191005
  Serious: Yes (Other)
  Sender: FDA-Public Use
  Company Number: DE-TOPROL ACQUISITION LLC-2019-TOP-001142

PATIENT
  Age: 1 Day
  Sex: Male
  Weight: 2 kg

DRUGS (5)
  1. IBUPROFEN. [Concomitant]
     Active Substance: IBUPROFEN
     Indication: MIGRAINE
     Dosage: PROBABLY TAKEN FOR NINE DAYS BETWEEN SW12+6 AND 16+5
     Route: 064
     Dates: start: 20180910, end: 20181007
  2. PARACETAMOL [Concomitant]
     Active Substance: ACETAMINOPHEN
     Indication: MIGRAINE
     Dosage: 1000 MG/D
     Route: 064
     Dates: start: 20190106, end: 20190106
  3. METOPROLOL SUCCINATE. [Suspect]
     Active Substance: METOPROLOL SUCCINATE
     Indication: MIGRAINE PROPHYLAXIS
     Dosage: 23.75 MG BID
     Route: 064
     Dates: start: 20180612, end: 20190223
  4. IMIGRAN                            /01044801/ [Concomitant]
     Active Substance: SUMATRIPTAN
     Indication: MIGRAINE
     Dosage: 20 MG/D ON FOUR DAYS BETWEEN SW5+4 AND 8+5
     Route: 064
     Dates: start: 20180721, end: 20180812
  5. COFFEINE-PROCAINE [Concomitant]
     Indication: MIGRAINE
     Dosage: IF REQUIRED
     Route: 064
     Dates: start: 20180724, end: 20190201

REACTIONS (2)
  - Small for dates baby [Not Recovered/Not Resolved]
  - Foetal exposure during pregnancy [Unknown]

NARRATIVE: CASE EVENT DATE: 20190223
